FAERS Safety Report 6141398-6 (Version None)
Quarter: 2009Q2

REPORT INFORMATION
  Report Type: 
  Country: None (occurrence: None)
  Receive Date: 20090402
  Receipt Date: 20090319
  Transmission Date: 20091009
  Serious: Yes (Other)
  Sender: FDA-Public Use
  Company Number: US-ROCHE-583076

PATIENT
  Sex: Female

DRUGS (5)
  1. PEG-INTERFERON A-2A (RO 25-8310) [Suspect]
     Indication: HEPATITIS C
     Dosage: FORM: PRE-FILLED SYRINGE
     Route: 065
     Dates: start: 20080320, end: 20090212
  2. RIBAVIRIN [Suspect]
     Indication: HEPATITIS C
     Route: 065
     Dates: start: 20080320, end: 20090212
  3. FAMVIR [Concomitant]
  4. PROZAC [Concomitant]
  5. PROZAC [Concomitant]
     Dosage: INCREASED TO 60 MG DAILY

REACTIONS (5)
  - ARTHRITIS [None]
  - ARTHROPATHY [None]
  - CHRONIC OBSTRUCTIVE PULMONARY DISEASE [None]
  - NIGHT SWEATS [None]
  - WHITE BLOOD CELL COUNT DECREASED [None]
